FAERS Safety Report 6421410-7 (Version None)
Quarter: 2009Q4

REPORT INFORMATION
  Report Type: 
  Country: None (occurrence: None)
  Receive Date: 20091030
  Receipt Date: 20091022
  Transmission Date: 20100525
  Serious: No
  Sender: FDA-Public Use
  Company Number: US-B.I. PHARMACEUTICALS,INC./RIDGEFIELD-2009-BP-12312BP

PATIENT
  Age: 51 Year
  Sex: Female

DRUGS (1)
  1. FLOMAX [Suspect]
     Indication: NEUROGENIC BLADDER
     Dosage: 0.4 MG
     Route: 048
     Dates: start: 20070601

REACTIONS (6)
  - AMENORRHOEA [None]
  - DYSURIA [None]
  - HOT FLUSH [None]
  - LOSS OF CONSCIOUSNESS [None]
  - MUSCLE ATROPHY [None]
  - PHOTOSENSITIVITY REACTION [None]
